FAERS Safety Report 8542345-X (Version None)
Quarter: 2012Q3

REPORT INFORMATION
  Report Type: 
  Country: None (occurrence: None)
  Receive Date: 20120726
  Receipt Date: 20110818
  Transmission Date: 20120928
  Serious: Yes (Other)
  Sender: FDA-Public Use
  Company Number: US-ASTRAZENECA-2011SE49975

PATIENT
  Age: 56 Year
  Sex: Female
  Weight: 68 kg

DRUGS (13)
  1. SEROQUEL [Suspect]
     Indication: SOMNAMBULISM
     Route: 048
     Dates: start: 20040101
  2. ZOCRO [Concomitant]
     Indication: HYPERCHOLESTEROLAEMIA
     Route: 048
  3. ASPIRIN [Concomitant]
     Indication: HYPERTENSION
     Route: 048
     Dates: start: 20110101
  4. LISINOPRIL AND HYDROCHLOROTHIAZIDE [Concomitant]
     Indication: CARDIAC DISORDER
     Route: 048
  5. LISINOPRIL AND HYDROCHLOROTHIAZIDE [Concomitant]
     Indication: HYPERTENSION
     Route: 048
  6. EMLODIPINE [Concomitant]
     Indication: HYPERTENSION
     Route: 048
     Dates: start: 20110101
  7. PLAVIX [Concomitant]
     Indication: CEREBROVASCULAR ACCIDENT PROPHYLAXIS
     Route: 048
  8. MINOXIPIL [Concomitant]
     Indication: CARDIAC DISORDER
     Route: 048
  9. EMLODIPINE [Concomitant]
     Indication: CARDIAC DISORDER
     Route: 048
     Dates: start: 20110101
  10. CLONAZEPAM [Suspect]
     Indication: SOMNAMBULISM
     Route: 048
     Dates: start: 20100101
  11. CLONIDINE [Concomitant]
     Indication: HYPERTENSION
     Route: 048
  12. PLAVIX [Concomitant]
     Indication: CARDIOVASCULAR INSUFFICIENCY
     Route: 048
  13. LOPRESSOR [Concomitant]
     Indication: HYPERTENSION
     Route: 048
     Dates: start: 20110101

REACTIONS (6)
  - INSOMNIA [None]
  - HYPERTENSION [None]
  - DEPRESSION [None]
  - SUICIDAL IDEATION [None]
  - OFF LABEL USE [None]
  - SOMNAMBULISM [None]
